FAERS Safety Report 4560709-6 (Version None)
Quarter: 2005Q1

REPORT INFORMATION
  Report Type: 
  Country: None (occurrence: None)
  Receive Date: 20050126
  Receipt Date: 20050113
  Transmission Date: 20050727
  Serious: Yes (Other)
  Sender: FDA-Public Use
  Company Number: US-JNJFOC-20040206219

PATIENT
  Sex: Female

DRUGS (14)
  1. INFLIXIMAB [Suspect]
     Indication: RHEUMATOID ARTHRITIS
     Route: 042
  2. METHOTREXATE [Concomitant]
  3. PREDNISONE [Concomitant]
  4. TOPAMAX [Concomitant]
  5. SALSALATE [Concomitant]
  6. FLEXERIL [Concomitant]
  7. SYNTHROID [Concomitant]
  8. FOLIC ACID [Concomitant]
     Dosage: 1-2 MG DAILY
  9. IMITREX [Concomitant]
     Dosage: AS NECESSARY
  10. AMBIEN [Concomitant]
  11. CALCIUM GLUCONATE [Concomitant]
  12. FLORICET [Concomitant]
     Dosage: 1 DOSE= 1 TABLET
  13. FOSAMAX [Concomitant]
  14. ULTRACET [Concomitant]

REACTIONS (2)
  - ATELECTASIS [None]
  - SYSTEMIC LUPUS ERYTHEMATOSUS [None]
